FAERS Safety Report 10889276 (Version 1)
Quarter: 2015Q1

REPORT INFORMATION
  Report Type: Spontaneous
  Country: GB (occurrence: GB)
  Receive Date: 20150305
  Receipt Date: 20150305
  Transmission Date: 20150721
  Serious: Yes (Other)
  Sender: FDA-Public Use
  Company Number: GB-MYLANLABS-2015M1006719

PATIENT

DRUGS (1)
  1. ESCITALOPRAM [Suspect]
     Active Substance: ESCITALOPRAM OXALATE
     Dosage: 10MG
     Route: 065

REACTIONS (7)
  - Suicidal behaviour [Unknown]
  - Alcohol abuse [Unknown]
  - Tremor [Unknown]
  - Imprisonment [Unknown]
  - Alcoholism [Unknown]
  - Unevaluable event [Unknown]
  - Mania [Unknown]
